FAERS Safety Report 5122201-X (Version None)
Quarter: 2006Q4

REPORT INFORMATION
  Report Type: 
  Country: None (occurrence: None)
  Receive Date: 20061003
  Receipt Date: 20060901
  Transmission Date: 20070319
  Serious: Yes (Death, Hospitalization, Other)
  Sender: FDA-Public Use
  Company Number: 2005167339

PATIENT
  Age: 85 Year
  Sex: Male
  Weight: 73.0291 kg

DRUGS (1)
  1. BEXTRA [Suspect]
     Indication: ARTHRITIS
     Dosage: 10 MG (1 IN 1 D)
     Dates: end: 20041010

REACTIONS (12)
  - APNOEA [None]
  - BRADYCARDIA [None]
  - BRONCHITIS [None]
  - CARDIAC ARREST [None]
  - CEREBROVASCULAR ACCIDENT [None]
  - CHRONIC OBSTRUCTIVE PULMONARY DISEASE [None]
  - CONDITION AGGRAVATED [None]
  - DRUG HYPERSENSITIVITY [None]
  - LOSS OF CONSCIOUSNESS [None]
  - LUNG INFILTRATION [None]
  - MUSCULOSKELETAL PAIN [None]
  - SKIN DISCOLOURATION [None]
